FAERS Safety Report 5624189-1 (Version None)
Quarter: 2008Q1

REPORT INFORMATION
  Report Type: 
  Country: None (occurrence: None)
  Receive Date: 20080213
  Receipt Date: 20080204
  Transmission Date: 20080703
  Serious: Yes (Other)
  Sender: FDA-Public Use
  Company Number: PHRM2008FR00688

PATIENT
  Sex: Male

DRUGS (5)
  1. TEGRETOL [Suspect]
     Dosage: 400 MG, BID
     Route: 048
  2. ANAFRANIL [Concomitant]
     Dosage: 75 MG, QD
     Route: 048
  3. LYSANXIA [Suspect]
     Dosage: 40 MG, BID
     Route: 048
  4. KARDEGIC [Concomitant]
     Dosage: 75 MG, QD
     Route: 048
  5. STILNOX                                 /FRA/ [Concomitant]
     Dosage: 1 DF, QD
     Route: 048

REACTIONS (1)
  - BLOOD CREATINE PHOSPHOKINASE INCREASED [None]
